FAERS Safety Report 11841134 (Version 1)
Quarter: 2015Q4

REPORT INFORMATION
  Report Type: Spontaneous
  Country: US (occurrence: US)
  Receive Date: 20151216
  Receipt Date: 20151216
  Transmission Date: 20160305
  Serious: Yes (Other)
  Sender: FDA-Public Use
  Company Number: US-SEPTODONT-201301084

PATIENT
  Age: 79 Year
  Sex: Female

DRUGS (4)
  1. CARBOCAINE 2% L [Suspect]
     Active Substance: LEVONORDEFRIN\MEPIVACAINE HYDROCHLORIDE
     Indication: LOCAL ANAESTHESIA
     Dosage: 1 CARTRIDGE
     Route: 004
     Dates: start: 20130130, end: 20130130
  2. BENZOCAINE. [Concomitant]
     Active Substance: BENZOCAINE
     Indication: LOCAL ANAESTHESIA
     Route: 061
     Dates: start: 20130130, end: 20130130
  3. CITANEST PLAIN [Suspect]
     Active Substance: PRILOCAINE HYDROCHLORIDE
     Indication: LOCAL ANAESTHESIA
     Dosage: 2 CARTRIDGES
     Route: 004
     Dates: start: 20130130, end: 20130130
  4. AMOXICILLIN. [Concomitant]
     Active Substance: AMOXICILLIN
     Indication: PRODUCT USED FOR UNKNOWN INDICATION
     Dosage: 500 MG X 4
     Route: 065

REACTIONS (8)
  - Pain [Recovered/Resolved]
  - Neck pain [None]
  - Chest discomfort [Recovered/Resolved]
  - Palpitations [Recovered/Resolved]
  - Pain in jaw [None]
  - Blood pressure increased [Recovered/Resolved]
  - Atrial fibrillation [Recovered/Resolved]
  - Speech disorder developmental [Recovered/Resolved]

NARRATIVE: CASE EVENT DATE: 20130130
